FAERS Safety Report 9821206 (Version 1)
Quarter: 2014Q1

REPORT INFORMATION
  Report Type: Spontaneous
  Country: US (occurrence: None)
  Receive Date: 20140115
  Receipt Date: 20140115
  Transmission Date: 20141002
  Serious: Yes (Other)
  Sender: FDA-Public Use
  Company Number: None

PATIENT
  Age: 44 Year
  Sex: Male
  Weight: 81.65 kg

DRUGS (1)
  1. ZYRTEC [Suspect]
     Indication: MULTIPLE ALLERGIES
     Route: 048
     Dates: start: 20080105, end: 20120611

REACTIONS (5)
  - Urticaria [None]
  - Pruritus [None]
  - Blood pressure decreased [None]
  - Thinking abnormal [None]
  - Drug withdrawal syndrome [None]
